FAERS Safety Report 5934019-6 (Version None)
Quarter: 2008Q4

REPORT INFORMATION
  Report Type: 
  Country: None (occurrence: None)
  Receive Date: 20081029
  Receipt Date: 20081020
  Transmission Date: 20090506
  Serious: Yes (Other)
  Sender: FDA-Public Use
  Company Number: IT-ASTRAZENECA-2008AC02788

PATIENT
  Age: 40 Year
  Sex: Female

DRUGS (1)
  1. ZESTORETIC [Suspect]
     Indication: HYPERTENSION
     Dates: end: 20061201

REACTIONS (1)
  - PHOTOSENSITIVITY REACTION [None]
